FAERS Safety Report 14321178 (Version 2)
Quarter: 2018Q1

REPORT INFORMATION
  Report Type: Report from Study
  Country: US (occurrence: US)
  Receive Date: 20171223
  Receipt Date: 20180118
  Transmission Date: 20180509
  Serious: No
  Sender: FDA-Public Use
  Company Number: PHEH2017US041413

PATIENT
  Sex: Male

DRUGS (5)
  1. ILARIS [Suspect]
     Active Substance: CANAKINUMAB
     Dosage: UNK; EVERY 4 WEEKS
     Route: 065
     Dates: start: 20171104
  2. ILARIS [Suspect]
     Active Substance: CANAKINUMAB
     Dosage: UNK; EVERY 4 WEEKS
     Route: 065
     Dates: start: 20171216
  3. ILARIS [Suspect]
     Active Substance: CANAKINUMAB
     Dosage: UNK EVERY 4 WEEKS
     Route: 065
  4. ILARIS [Suspect]
     Active Substance: CANAKINUMAB
     Indication: PYREXIA
     Route: 065
  5. ILARIS [Suspect]
     Active Substance: CANAKINUMAB
     Dosage: 200 MG, UNK
     Route: 065

REACTIONS (2)
  - Incorrect dose administered [Unknown]
  - Inappropriate schedule of drug administration [Unknown]
